FAERS Safety Report 4941706-5 (Version None)
Quarter: 2006Q1

REPORT INFORMATION
  Report Type: 
  Country: None (occurrence: None)
  Receive Date: 20060313
  Receipt Date: 20041125
  Transmission Date: 20060701
  Serious: Yes (Hospitalization)
  Sender: FDA-Public Use
  Company Number: ES-ROCHE-387111

PATIENT
  Age: 58 Year
  Sex: Female
  Weight: 74.5 kg

DRUGS (13)
  1. DACLIZUMAB [Suspect]
     Route: 042
     Dates: start: 20041019
  2. DACLIZUMAB [Suspect]
     Route: 042
     Dates: end: 20041213
  3. MYCOPHENOLATE MOFETIL [Suspect]
     Route: 048
     Dates: start: 20041019
  4. SIROLIMUS [Suspect]
     Route: 048
     Dates: start: 20050912
  5. SIROLIMUS [Suspect]
     Route: 048
     Dates: start: 20041019
  6. STEROIDS NOS [Suspect]
     Route: 048
     Dates: start: 20041019
  7. OMEPRAZOLE [Concomitant]
     Route: 048
     Dates: start: 20041020
  8. COTRIMOXAZOLE [Concomitant]
     Route: 048
     Dates: start: 20041020
  9. FUROSEMIDE [Concomitant]
     Dates: start: 20050627
  10. DOXAZOSIN MESYLATE [Concomitant]
     Dates: start: 20050418
  11. ATORVASTATIN CALCIUM [Concomitant]
     Dates: start: 20050418
  12. ATENOLOL [Concomitant]
     Dates: start: 20050626
  13. CALCIUM CARBONATE [Concomitant]
     Dates: start: 20051211

REACTIONS (4)
  - HERPES OPHTHALMIC [None]
  - INTESTINAL OBSTRUCTION [None]
  - SUBILEUS [None]
  - URINARY TRACT INFECTION [None]
